FAERS Safety Report 7833038-2 (Version None)
Quarter: 2011Q4

REPORT INFORMATION
  Report Type: 
  Country: None (occurrence: None)
  Receive Date: 20111024
  Receipt Date: 20111013
  Transmission Date: 20120403
  Serious: Yes (Hospitalization, Other)
  Sender: FDA-Public Use
  Company Number: JP-JNJFOC-20111002619

PATIENT
  Sex: Male

DRUGS (5)
  1. WARFARIN SODIUM [Concomitant]
     Route: 048
     Dates: start: 20080501
  2. LEVOFLOXACIN [Suspect]
     Indication: PROSTATITIS
     Route: 048
     Dates: start: 20110815, end: 20110816
  3. ALBUMIN TANNATE [Concomitant]
     Route: 048
     Dates: start: 20080501
  4. MIYA BM [Concomitant]
     Route: 048
     Dates: start: 20080501
  5. MUCODYNE [Concomitant]
     Route: 065

REACTIONS (2)
  - MONOPLEGIA [None]
  - CONVULSION [None]
